FAERS Safety Report 21012459 (Version 5)
Quarter: 2022Q4

REPORT INFORMATION
  Report Type: Report from Study
  Country: US (occurrence: US)
  Receive Date: 20220627
  Receipt Date: 20221019
  Transmission Date: 20230112
  Serious: Yes (Other)
  Sender: FDA-Public Use
  Company Number: US-NOVARTISTESTPH-NVSC2022US146315

PATIENT
  Sex: Male

DRUGS (1)
  1. COSENTYX [Suspect]
     Active Substance: SECUKINUMAB
     Indication: Psoriatic arthropathy
     Dosage: UNK
     Route: 065

REACTIONS (8)
  - Hip fracture [Unknown]
  - Lower limb fracture [Unknown]
  - COVID-19 [Unknown]
  - Joint swelling [Unknown]
  - Arthritis [Unknown]
  - Condition aggravated [Unknown]
  - Fall [Unknown]
  - Arthralgia [Unknown]
